FAERS Safety Report 11425695 (Version 1)
Quarter: 2015Q3

REPORT INFORMATION
  Report Type: Spontaneous
  Country: US (occurrence: US)
  Receive Date: 20150821
  Receipt Date: 20150821
  Transmission Date: 20151125
  Serious: Yes (Other)
  Sender: FDA-Public Use
  Company Number: US-ELI_LILLY_AND_COMPANY-US201304000179

PATIENT
  Sex: Female

DRUGS (3)
  1. LANTUS [Concomitant]
     Active Substance: INSULIN GLARGINE
     Dosage: UNK, UNKNOWN
  2. HUMULIN R [Suspect]
     Active Substance: INSULIN HUMAN
     Indication: DIABETES MELLITUS
     Dosage: 8 U, UNKNOWN
  3. HUMULIN R [Suspect]
     Active Substance: INSULIN HUMAN
     Dosage: 40 U, SINGLE

REACTIONS (2)
  - Hypoglycaemia [Unknown]
  - Overdose [Recovered/Resolved]
